FAERS Safety Report 7276022-2 (Version None)
Quarter: 2011Q1

REPORT INFORMATION
  Report Type: 
  Country: None (occurrence: None)
  Receive Date: 20110204
  Receipt Date: 20110127
  Transmission Date: 20110831
  Serious: Yes (Hospitalization)
  Sender: FDA-Public Use
  Company Number: B0697497A

PATIENT
  Sex: Female
  Weight: 69 kg

DRUGS (2)
  1. LAPATINIB [Suspect]
     Indication: BREAST CANCER
     Dosage: 1250MG PER DAY
     Dates: start: 20100127, end: 20100206
  2. DOCETAXEL [Suspect]
     Indication: BREAST CANCER
     Dates: start: 20100127, end: 20100127

REACTIONS (2)
  - INFECTION [None]
  - PYREXIA [None]
